FAERS Safety Report 8333624-X (Version None)
Quarter: 2012Q2

REPORT INFORMATION
  Report Type: 
  Country: None (occurrence: None)
  Receive Date: 20120503
  Receipt Date: 20101227
  Transmission Date: 20120825
  Serious: No
  Sender: FDA-Public Use
  Company Number: US-TEVA-2010006600

PATIENT
  Sex: Male
  Weight: 83.99 kg

DRUGS (6)
  1. NORTRIPTYLINE HCL [Concomitant]
     Indication: BACK PAIN
  2. NORTRIPTYLINE HCL [Concomitant]
     Indication: DEPRESSION
  3. NUVIGIL [Suspect]
     Dosage: 300 MILLIGRAM;
  4. IRON PILL [Concomitant]
     Indication: ANAEMIA
  5. MULTI-VITAMIN [Concomitant]
  6. NUVIGIL [Suspect]
     Indication: NARCOLEPSY
     Dosage: 250 MILLIGRAM;
     Route: 048
     Dates: start: 20090101, end: 20101001

REACTIONS (1)
  - HEADACHE [None]
